FAERS Safety Report 23766213 (Version 2)
Quarter: 2024Q2

REPORT INFORMATION
  Report Type: Spontaneous
  Country: FI (occurrence: FI)
  Receive Date: 20240422
  Receipt Date: 20240603
  Transmission Date: 20240716
  Serious: Yes (Other)
  Sender: FDA-Public Use
  Company Number: FI-CELLTRION INC.-2024FI006933

PATIENT

DRUGS (1)
  1. INFLIXIMAB [Suspect]
     Active Substance: INFLIXIMAB
     Indication: Product used for unknown indication
     Dosage: REMSIMA 120 MG SC PRE-FILLED PEN 1 ML
     Route: 058

REACTIONS (5)
  - Gastrointestinal disorder [Unknown]
  - Injection site haemorrhage [Unknown]
  - Device malfunction [Unknown]
  - Drug dose omission by device [Unknown]
  - Loss of therapeutic response [Unknown]
